FAERS Safety Report 12037171 (Version 2)
Quarter: 2016Q1

REPORT INFORMATION
  Report Type: Spontaneous
  Country: JP (occurrence: JP)
  Receive Date: 20160208
  Receipt Date: 20160218
  Transmission Date: 20160526
  Serious: Yes (Hospitalization)
  Sender: FDA-Public Use
  Company Number: JP-ACCORD-037624

PATIENT
  Age: 49 Year
  Sex: Female

DRUGS (1)
  1. METHOTREXATE [Suspect]
     Active Substance: METHOTREXATE
     Indication: GESTATIONAL TROPHOBLASTIC TUMOUR
     Dosage: 20 MG/DAY FOR 5 DAYS EVERY 2 WEEKS
     Route: 030

REACTIONS (4)
  - Drug eruption [Recovering/Resolving]
  - Stomatitis [Recovering/Resolving]
  - Febrile neutropenia [Recovered/Resolved]
  - Subcutaneous abscess [Recovering/Resolving]
